FAERS Safety Report 7167110-X (Version None)
Quarter: 2010Q4

REPORT INFORMATION
  Report Type: 
  Country: None (occurrence: None)
  Receive Date: 20101216
  Receipt Date: 20101207
  Transmission Date: 20110411
  Serious: Yes (Other)
  Sender: FDA-Public Use
  Company Number: DE-NOVEN-10DE001428

PATIENT
  Age: 32 Year
  Sex: Male

DRUGS (3)
  1. PAROXETINE [Suspect]
     Indication: PRODUCT USED FOR UNKNOWN INDICATION
     Dosage: 20 MG, QD
  2. PROMETHAZINE [Concomitant]
     Dosage: 150 MG, UNK
  3. LORAZEPAM [Concomitant]
     Dosage: 3 MG, UNK

REACTIONS (5)
  - IMPULSIVE BEHAVIOUR [None]
  - LACERATION [None]
  - RESTLESSNESS [None]
  - SPINAL COLUMN INJURY [None]
  - SUICIDE ATTEMPT [None]
